FAERS Safety Report 23162196 (Version 1)
Quarter: 2023Q4

REPORT INFORMATION
  Report Type: Other
  Country: CN (occurrence: None)
  Receive Date: 20231109
  Receipt Date: 20231109
  Transmission Date: 20240110
  Serious: Yes (Other)
  Sender: FDA-Public Use
  Company Number: CN-ROCHE-3450674

PATIENT

DRUGS (2)
  1. BEVACIZUMAB [Suspect]
     Active Substance: BEVACIZUMAB
     Indication: HER2 negative breast cancer
     Dosage: ON DAY 1
     Route: 042
  2. ETOPOSIDE [Suspect]
     Active Substance: ETOPOSIDE
     Indication: HER2 negative breast cancer
     Dosage: ON DAY 1 TO 3
     Route: 042

REACTIONS (1)
  - Neuropathy peripheral [Unknown]
